FAERS Safety Report 8401122-0 (Version None)
Quarter: 2012Q2

REPORT INFORMATION
  Report Type: 
  Country: None (occurrence: None)
  Receive Date: 20120601
  Receipt Date: 20120529
  Transmission Date: 20120825
  Serious: No
  Sender: FDA-Public Use
  Company Number: US-PFIZER INC-2012129278

PATIENT
  Sex: Female
  Weight: 88.435 kg

DRUGS (6)
  1. CRESTOR [Concomitant]
     Indication: BLOOD CHOLESTEROL INCREASED
     Dosage: UNK
  2. LYRICA [Suspect]
     Indication: BACK PAIN
     Dosage: 150 MG, 2X/DAY
     Route: 048
     Dates: start: 20120401, end: 20120401
  3. LYRICA [Suspect]
     Indication: ARTHRITIS
     Dosage: 75 MG, 2X/DAY
     Route: 048
     Dates: start: 20120401
  4. RAMIPRIL [Concomitant]
     Indication: HYPERTENSION
     Dosage: UNK
  5. ARTHROTEC [Concomitant]
     Dosage: UNK
  6. TRAMADOL [Concomitant]
     Indication: PAIN
     Dosage: UNK

REACTIONS (3)
  - SOMNOLENCE [None]
  - DYSKINESIA [None]
  - DIZZINESS [None]
